FAERS Safety Report 8066944-7 (Version None)
Quarter: 2012Q1

REPORT INFORMATION
  Report Type: 
  Country: None (occurrence: None)
  Receive Date: 20120124
  Receipt Date: 20120120
  Transmission Date: 20120608
  Serious: Yes (Hospitalization)
  Sender: FDA-Public Use
  Company Number: FR-MERCK-1201FRA00050

PATIENT
  Age: 84 Year
  Sex: Male

DRUGS (6)
  1. STROMECTOL [Suspect]
     Indication: ACARODERMATITIS
     Route: 048
     Dates: start: 20110908, end: 20110908
  2. STROMECTOL [Suspect]
     Route: 048
     Dates: start: 20110915, end: 20110915
  3. STROMECTOL [Suspect]
     Route: 048
     Dates: start: 20110922, end: 20110922
  4. BENZYL BENZOATE [Concomitant]
     Indication: ACARODERMATITIS
     Route: 061
     Dates: start: 20110908, end: 20110908
  5. BENZYL BENZOATE [Concomitant]
     Route: 061
     Dates: start: 20110915, end: 20110915
  6. BENZYL BENZOATE [Concomitant]
     Route: 061
     Dates: start: 20110922, end: 20110922

REACTIONS (1)
  - RASH [None]
